FAERS Safety Report 6803290-0 (Version None)
Quarter: 2010Q2

REPORT INFORMATION
  Report Type: 
  Country: None (occurrence: None)
  Receive Date: 20100628
  Receipt Date: 20100615
  Transmission Date: 20101027
  Serious: Yes (Hospitalization, Other)
  Sender: FDA-Public Use
  Company Number: US-PFIZER INC-2010075376

PATIENT
  Sex: Female
  Weight: 99.773 kg

DRUGS (8)
  1. XANAX [Suspect]
     Indication: NERVOUSNESS
     Dosage: FREQUENCY: TABLET,
     Route: 048
  2. XANAX [Suspect]
     Indication: INSOMNIA
  3. EFFEXOR XR [Concomitant]
     Dosage: UNK
  4. WELLBUTRIN [Concomitant]
     Dosage: 300 MG, UNK
  5. CRESTOR [Concomitant]
     Dosage: UNK
  6. ACETYLSALICYLIC ACID [Concomitant]
     Dosage: UNK
  7. HYDROCODONE [Concomitant]
     Indication: PAIN
     Dosage: UNK
  8. LASIX [Concomitant]
     Dosage: UNK

REACTIONS (6)
  - BACK INJURY [None]
  - BIPOLAR DISORDER [None]
  - CORONARY ARTERY OCCLUSION [None]
  - KNEE ARTHROPLASTY [None]
  - MENTAL DISORDER [None]
  - NERVOUSNESS [None]
